FAERS Safety Report 7739770-3 (Version None)
Quarter: 2011Q3

REPORT INFORMATION
  Report Type: 
  Country: None (occurrence: None)
  Receive Date: 20110909
  Receipt Date: 20110830
  Transmission Date: 20111222
  Serious: No
  Sender: FDA-Public Use
  Company Number: GR-NOVOPROD-332418

PATIENT
  Age: 49 Year
  Sex: Male
  Weight: 110 kg

DRUGS (4)
  1. GLUCOPHAGE [Concomitant]
     Route: 048
  2. LIPITOR [Concomitant]
     Route: 048
  3. IRBESARTAN AND HYDROCHLOROTHIAZIDE [Concomitant]
  4. VICTOZA [Suspect]
     Indication: TYPE 2 DIABETES MELLITUS
     Dosage: 1.2 MG, QD
     Route: 058
     Dates: start: 20110512, end: 20110614

REACTIONS (2)
  - INJECTION SITE RASH [None]
  - FURUNCLE [None]
